FAERS Safety Report 4697014-3 (Version None)
Quarter: 2005Q2

REPORT INFORMATION
  Report Type: 
  Country: None (occurrence: None)
  Receive Date: 20050620
  Receipt Date: 20050217
  Transmission Date: 20051028
  Serious: No
  Sender: FDA-Public Use
  Company Number: US-YAMANOUCHI-YPA20050150

PATIENT
  Sex: Female

DRUGS (12)
  1. VESICARE [Suspect]
     Indication: MICTURITION URGENCY
     Dosage: 5 MG QD PO
     Route: 048
     Dates: start: 20050211
  2. VESICARE [Suspect]
     Indication: MICTURITION URGENCY
     Dosage: 2.5 MG QD PO
     Route: 048
  3. MULTI-VITAMINS [Concomitant]
  4. HYDRALAZINE [Concomitant]
  5. FOLIC ACID [Concomitant]
  6. SYNTHROID [Concomitant]
  7. HYDROCHLOROTHIAZIDE [Concomitant]
  8. ASPIRIN [Concomitant]
  9. COLESTID [Concomitant]
  10. VALIUM [Concomitant]
  11. POTASSIUM ACETATE [Concomitant]
  12. ESTROGEN [Concomitant]

REACTIONS (5)
  - DIZZINESS [None]
  - FATIGUE [None]
  - HAEMATURIA [None]
  - PURPURA [None]
  - VISION BLURRED [None]
